FAERS Safety Report 9654906 (Version 2)
Quarter: 2013Q4

REPORT INFORMATION
  Report Type: Not Available
  Country: US (occurrence: US)
  Receive Date: 20131029
  Receipt Date: 20131029
  Transmission Date: 20140711
  Serious: No
  Sender: FDA-Public Use
  Company Number: US-PURDUE-USA-2010-0056911

PATIENT
  Sex: 0

DRUGS (1)
  1. OXYCONTIN (NDA 22-272) [Suspect]
     Indication: PAIN
     Dosage: 80 MG, UNK
     Route: 048

REACTIONS (9)
  - Drug effect increased [Unknown]
  - Medication residue present [Unknown]
  - Therapeutic response delayed [Unknown]
  - Drug ineffective [Unknown]
  - Nausea [Unknown]
  - Somnolence [Unknown]
  - Diarrhoea [Unknown]
  - Abdominal pain [Unknown]
  - Abdominal distension [Unknown]
